FAERS Safety Report 10973402 (Version 20)
Quarter: 2017Q3

REPORT INFORMATION
  Report Type: Report from Study
  Country: CA (occurrence: CA)
  Receive Date: 20150401
  Receipt Date: 20170716
  Transmission Date: 20171127
  Serious: Yes (Other)
  Sender: FDA-Public Use
  Company Number: CA-ROCHE-1516383

PATIENT
  Age: 54 Year
  Sex: Female
  Weight: 66 kg

DRUGS (20)
  1. PREDNISONE. [Suspect]
     Active Substance: PREDNISONE
     Indication: PRODUCT USED FOR UNKNOWN INDICATION
     Route: 048
  2. HYDROXYCHLOROQUINE [Suspect]
     Active Substance: HYDROXYCHLOROQUINE
     Indication: PRODUCT USED FOR UNKNOWN INDICATION
     Route: 065
  3. LIPITOR [Concomitant]
     Active Substance: ATORVASTATIN CALCIUM
  4. PANTOLOC [Concomitant]
     Active Substance: PANTOPRAZOLE SODIUM
     Route: 048
  5. ACTEMRA [Suspect]
     Active Substance: TOCILIZUMAB
     Route: 042
     Dates: start: 20150326, end: 20170615
  6. PLAQUENIL [Concomitant]
     Active Substance: HYDROXYCHLOROQUINE SULFATE
     Route: 048
  7. PREDNISONE. [Suspect]
     Active Substance: PREDNISONE
     Route: 048
  8. EZETROL [Concomitant]
     Active Substance: EZETIMIBE
  9. TYLENOL [Concomitant]
     Active Substance: ACETAMINOPHEN
  10. ACTEMRA [Suspect]
     Active Substance: TOCILIZUMAB
     Indication: RHEUMATOID ARTHRITIS
     Route: 042
     Dates: start: 20141128
  11. TAPAZOLE [Concomitant]
     Active Substance: METHIMAZOLE
     Dosage: FOR THYROID
     Route: 065
  12. HUMIRA [Concomitant]
     Active Substance: ADALIMUMAB
  13. RAMIPRIL. [Concomitant]
     Active Substance: RAMIPRIL
     Route: 048
  14. ACTEMRA [Suspect]
     Active Substance: TOCILIZUMAB
     Route: 042
     Dates: start: 20141230
  15. PLAQUENIL [Concomitant]
     Active Substance: HYDROXYCHLOROQUINE SULFATE
     Dosage: STARTED ON SEPT 8TH (FLARING ON HUMIRA)
     Route: 065
  16. RAMIPRIL. [Concomitant]
     Active Substance: RAMIPRIL
     Indication: RENAL FAILURE
     Dosage: PREVIOUS KIDNEY FAILURE - TAKING AS PROPHYLACTIC
     Route: 065
  17. PROLIA [Concomitant]
     Active Substance: DENOSUMAB
     Dosage: FOR OSTEOPOROSIS/OSTEOPENIA - AS PREVENTION
     Route: 065
  18. ACTEMRA [Suspect]
     Active Substance: TOCILIZUMAB
     Route: 042
     Dates: start: 20150129
  19. BABY ASPIRIN [Concomitant]
     Active Substance: ASPIRIN
     Dosage: (SINCE LEG AMPUTATION BLOOD CLOT)
     Route: 065
  20. CIPROFLOXACIN. [Concomitant]
     Active Substance: CIPROFLOXACIN
     Route: 065
     Dates: start: 20160419

REACTIONS (20)
  - Nephrolithiasis [Unknown]
  - Pain [Not Recovered/Not Resolved]
  - Urinary tract infection [Not Recovered/Not Resolved]
  - Arthralgia [Unknown]
  - Nasopharyngitis [Recovering/Resolving]
  - Acarodermatitis [Unknown]
  - Allergic bronchitis [Unknown]
  - Infusion related reaction [Unknown]
  - Weight increased [Unknown]
  - Rheumatoid arthritis [Unknown]
  - Insulin resistance [Unknown]
  - Underdose [Unknown]
  - Drug ineffective [Unknown]
  - Headache [Unknown]
  - Drug effect incomplete [Unknown]
  - Blood pressure increased [Unknown]
  - Joint swelling [Unknown]
  - Thyroid disorder [Unknown]
  - Hypotension [Unknown]
  - Heart rate increased [Unknown]

NARRATIVE: CASE EVENT DATE: 20141230
